FAERS Safety Report 4673544-5 (Version None)
Quarter: 2005Q2

REPORT INFORMATION
  Report Type: 
  Country: None (occurrence: None)
  Receive Date: 20050525
  Receipt Date: 20050516
  Transmission Date: 20051028
  Serious: Yes (Other)
  Sender: FDA-Public Use
  Company Number: PHEH2005US05541

PATIENT
  Age: 42 Year
  Sex: Female
  Weight: 77 kg

DRUGS (6)
  1. ZOMETA [Suspect]
     Dosage: 4 MG EVERY 4 WEEKS
     Dates: start: 20030808, end: 20050311
  2. HERCEPTIN ^HOFFMANN-LA ROCHE^ [Concomitant]
  3. XELODA [Concomitant]
  4. FASLODEX [Concomitant]
  5. ZOFRAN [Concomitant]
  6. BENADRYL ^PFIZER WARNER-LAMBERT^ [Concomitant]

REACTIONS (4)
  - ASEPTIC NECROSIS BONE [None]
  - BONE DISORDER [None]
  - TOOTH DISORDER [None]
  - TOOTH EXTRACTION [None]
